FAERS Safety Report 15984671 (Version 1)
Quarter: 2019Q1

REPORT INFORMATION
  Report Type: Spontaneous
  Country: US (occurrence: US)
  Receive Date: 20190220
  Receipt Date: 20190220
  Transmission Date: 20190418
  Serious: No
  Sender: FDA-Public Use
  Company Number: US-TEVA-2019-US-1005109

PATIENT
  Sex: Female

DRUGS (1)
  1. PREDNISONE. [Suspect]
     Active Substance: PREDNISONE
     Indication: INFLAMMATION
     Dates: start: 20190107

REACTIONS (5)
  - Malaise [Unknown]
  - Dyskinesia [Unknown]
  - Headache [Unknown]
  - Muscle spasms [Unknown]
  - Chills [Unknown]
